FAERS Safety Report 18663381 (Version 1)
Quarter: 2020Q4

REPORT INFORMATION
  Report Type: Report from Study
  Country: US (occurrence: US)
  Receive Date: 20201224
  Receipt Date: 20201224
  Transmission Date: 20210114
  Serious: Yes (Hospitalization)
  Sender: FDA-Public Use
  Company Number: US-JNJFOC-20201228472

PATIENT
  Age: 66 Year
  Sex: Female
  Weight: 79.45 kg

DRUGS (2)
  1. MACITENTAN [Suspect]
     Active Substance: MACITENTAN
     Indication: PULMONARY HYPERTENSION
     Route: 048
  2. TADALAFIL. [Concomitant]
     Active Substance: TADALAFIL
     Route: 065

REACTIONS (2)
  - Blood count abnormal [Unknown]
  - Blood iron decreased [Unknown]

NARRATIVE: CASE EVENT DATE: 20201204
